FAERS Safety Report 14155880 (Version 1)
Quarter: 2017Q4

REPORT INFORMATION
  Report Type: Spontaneous
  Country: GR (occurrence: GR)
  Receive Date: 20171103
  Receipt Date: 20171103
  Transmission Date: 20180321
  Serious: Yes (Other)
  Sender: FDA-Public Use
  Company Number: GR-ROCHE-2017534

PATIENT
  Age: 81 Year
  Sex: Male

DRUGS (6)
  1. GAZYVARO [Suspect]
     Active Substance: OBINUTUZUMAB
     Indication: CHRONIC LYMPHOCYTIC LEUKAEMIA
     Route: 065
     Dates: start: 20160908
  2. GAZYVARO [Suspect]
     Active Substance: OBINUTUZUMAB
     Route: 065
  3. GAZYVARO [Suspect]
     Active Substance: OBINUTUZUMAB
     Route: 065
     Dates: start: 20160925
  4. CHLORAMBUCIL [Suspect]
     Active Substance: CHLORAMBUCIL
     Route: 065
  5. CHLORAMBUCIL [Suspect]
     Active Substance: CHLORAMBUCIL
     Indication: CHRONIC LYMPHOCYTIC LEUKAEMIA
     Route: 065
     Dates: start: 20160908
  6. CHLORAMBUCIL [Suspect]
     Active Substance: CHLORAMBUCIL
     Route: 065
     Dates: start: 20160923, end: 20170125

REACTIONS (5)
  - Hypotension [Recovered/Resolved]
  - Tumour lysis syndrome [Unknown]
  - Vision blurred [Recovered/Resolved]
  - Discomfort [Recovered/Resolved]
  - Platelet count decreased [Unknown]
